FAERS Safety Report 23663048 (Version 1)
Quarter: 2024Q1

REPORT INFORMATION
  Report Type: Spontaneous
  Country: JP (occurrence: JP)
  Receive Date: 20240322
  Receipt Date: 20240322
  Transmission Date: 20240409
  Serious: Yes (Life-Threatening, Hospitalization, Other)
  Sender: FDA-Public Use
  Company Number: JP-PFIZER INC-202400068984

PATIENT
  Sex: Male
  Weight: 1.6 kg

DRUGS (10)
  1. SPIRONOLACTONE [Suspect]
     Active Substance: SPIRONOLACTONE
     Indication: Glycogen storage disease type II
     Dosage: 10 MG
     Route: 064
  2. SPIRONOLACTONE [Suspect]
     Active Substance: SPIRONOLACTONE
     Dosage: 25 MG
     Route: 064
  3. FUROSEMIDE [Suspect]
     Active Substance: FUROSEMIDE
     Indication: Hypervolaemia
     Dosage: 10 MG
     Route: 064
  4. FUROSEMIDE [Suspect]
     Active Substance: FUROSEMIDE
     Indication: Glycogen storage disease type II
     Dosage: 20-30 MG
     Route: 064
  5. FUROSEMIDE [Suspect]
     Active Substance: FUROSEMIDE
     Dosage: 40 MG
     Route: 064
  6. CARVEDILOL [Suspect]
     Active Substance: CARVEDILOL
     Indication: Glycogen storage disease type II
     Dosage: 1.25 MG
     Route: 064
  7. CARVEDILOL [Suspect]
     Active Substance: CARVEDILOL
     Dosage: 2.5 - 3.75 MG
     Route: 064
  8. CARVEDILOL [Suspect]
     Active Substance: CARVEDILOL
     Dosage: 5.0 MG
     Route: 064
  9. SOTALOL [Suspect]
     Active Substance: SOTALOL
     Indication: Glycogen storage disease type II
     Dosage: 40 MG
     Route: 064
  10. SOTALOL [Suspect]
     Active Substance: SOTALOL
     Dosage: 80 MG
     Route: 064

REACTIONS (2)
  - Premature baby [Unknown]
  - Maternal exposure during pregnancy [Unknown]
